FAERS Safety Report 11939632 (Version 1)
Quarter: 2016Q1

REPORT INFORMATION
  Report Type: Spontaneous
  Country: CN (occurrence: CN)
  Receive Date: 20160122
  Receipt Date: 20160122
  Transmission Date: 20160526
  Serious: Yes (Other)
  Sender: FDA-Public Use
  Company Number: CN-JNJFOC-20151225677

PATIENT

DRUGS (3)
  1. PALIPERIDONE [Suspect]
     Active Substance: PALIPERIDONE
     Indication: SCHIZOPHRENIA
     Dosage: 6 MG PER DAY TO 12 MG PER DAY
     Route: 048
  2. PALIPERIDONE PALMITATE [Suspect]
     Active Substance: PALIPERIDONE PALMITATE
     Indication: SCHIZOPHRENIA
     Route: 030
  3. PALIPERIDONE PALMITATE [Suspect]
     Active Substance: PALIPERIDONE PALMITATE
     Indication: SCHIZOPHRENIA
     Dosage: RANGE OF 25-150 MG
     Route: 030

REACTIONS (19)
  - Hepatitis acute [Recovered/Resolved]
  - Dysfunctional uterine bleeding [Recovered/Resolved]
  - Hallucination [Recovered/Resolved]
  - Pleurothotonus [Recovered/Resolved]
  - Tinnitus [Recovered/Resolved]
  - Delusion [Recovered/Resolved]
  - Tardive dyskinesia [Recovered/Resolved]
  - Sinus bradycardia [Recovered/Resolved]
  - Oedema peripheral [Recovered/Resolved]
  - Tic [Recovered/Resolved]
  - Galactorrhoea [Recovered/Resolved]
  - Mania [Recovered/Resolved]
  - Atrial fibrillation [Recovered/Resolved]
  - Neuroleptic malignant syndrome [Recovered/Resolved]
  - Vaginal haemorrhage [Recovered/Resolved]
  - Generalised oedema [Recovered/Resolved]
  - Enuresis [Recovered/Resolved]
  - Pulmonary embolism [Recovered/Resolved]
  - Pyrexia [Recovered/Resolved]
